FAERS Safety Report 8564042-7 (Version None)
Quarter: 2012Q3

REPORT INFORMATION
  Report Type: 
  Country: None (occurrence: None)
  Receive Date: 20120723
  Receipt Date: 20120705
  Transmission Date: 20120928
  Serious: Yes (Hospitalization)
  Sender: FDA-Public Use
  Company Number: 2012PROUSA01601

PATIENT
  Age: 70 Year
  Sex: Male
  Weight: 69.8 kg

DRUGS (6)
  1. LUPRON [Concomitant]
  2. GARLIC (GARLIC [Concomitant]
  3. OMEGA-3 FATTY ACIDS (OMEGA-3 FATTY ACIDS) [Concomitant]
  4. PROVENGE [Suspect]
     Indication: PROSTATE CANCER METASTATIC
     Dosage: 250 ML, SINGLE, INTRAVENOUS
     Route: 042
     Dates: start: 20120614, end: 20120614
  5. MULTIVITAMIN [Concomitant]
  6. CALCIUM CITRATE [Concomitant]

REACTIONS (9)
  - RENAL FAILURE ACUTE [None]
  - DEHYDRATION [None]
  - URINARY TRACT INFECTION [None]
  - ANAEMIA [None]
  - COUGH [None]
  - HYPERSENSITIVITY [None]
  - DIARRHOEA [None]
  - HYPONATRAEMIA [None]
  - STAPHYLOCOCCAL SEPSIS [None]
